FAERS Safety Report 6343835-0 (Version None)
Quarter: 2009Q3

REPORT INFORMATION
  Report Type: 
  Country: None (occurrence: None)
  Receive Date: 20090908
  Receipt Date: 20090904
  Transmission Date: 20100115
  Serious: Yes (Life-Threatening, Hospitalization, Other)
  Sender: FDA-Public Use
  Company Number: PHHO2009IT10899

PATIENT
  Sex: Female
  Weight: 62 kg

DRUGS (3)
  1. AMN107 AMN+CAP [Suspect]
     Indication: CHRONIC MYELOID LEUKAEMIA
     Dosage: 800 MG
     Route: 048
     Dates: start: 20090530, end: 20090821
  2. NOVONORM [Concomitant]
     Indication: DIABETES MELLITUS
  3. TENORMIN [Concomitant]
     Indication: ESSENTIAL HYPERTENSION

REACTIONS (7)
  - BRAIN OPERATION [None]
  - CEREBRAL HAEMORRHAGE [None]
  - HEADACHE [None]
  - LOSS OF CONSCIOUSNESS [None]
  - NAUSEA [None]
  - PLATELET COUNT DECREASED [None]
  - VOMITING [None]
